FAERS Safety Report 21124920 (Version 4)
Quarter: 2023Q1

REPORT INFORMATION
  Report Type: Other
  Country: CA (occurrence: CA)
  Receive Date: 20220725
  Receipt Date: 20230324
  Transmission Date: 20230417
  Serious: Yes (Hospitalization, Other)
  Sender: FDA-Public Use
  Company Number: CA-ASTELLAS-2022US025711

PATIENT
  Sex: Female
  Weight: 1 kg

DRUGS (28)
  1. AMPHOTERICIN B [Suspect]
     Active Substance: AMPHOTERICIN B
     Indication: Antifungal prophylaxis
     Dosage: UNK UNK, UNKNOWN FREQ.
     Route: 064
  2. AMPHOTERICIN B [Suspect]
     Active Substance: AMPHOTERICIN B
     Indication: Foetal exposure during pregnancy
  3. BETAMETHASONE [Suspect]
     Active Substance: BETAMETHASONE
     Indication: Maternal therapy to enhance foetal lung maturity
     Dosage: UNK UNK, UNKNOWN FREQ.
     Route: 064
  4. BETAMETHASONE [Suspect]
     Active Substance: BETAMETHASONE
     Indication: Foetal exposure during pregnancy
  5. CEFUROXIME [Suspect]
     Active Substance: CEFUROXIME
     Indication: Pericoronitis
     Dosage: UNK UNK, UNKNOWN FREQ.
     Route: 064
  6. CEFUROXIME [Suspect]
     Active Substance: CEFUROXIME
     Indication: Febrile neutropenia
  7. CEFUROXIME [Suspect]
     Active Substance: CEFUROXIME
     Indication: Foetal exposure during pregnancy
  8. CYTARABINE [Suspect]
     Active Substance: CYTARABINE
     Indication: Acute myeloid leukaemia
     Dosage: UNK UNK, UNKNOWN FREQ.
     Route: 064
  9. CYTARABINE [Suspect]
     Active Substance: CYTARABINE
     Indication: Foetal exposure during pregnancy
     Dosage: 100 MG/M2, UNKNOWN FREQ. (POWDER FOR SOLTION INTRATHECAL)
     Route: 064
  10. CYTARABINE [Suspect]
     Active Substance: CYTARABINE
     Route: 064
  11. CYTARABINE [Suspect]
     Active Substance: CYTARABINE
     Indication: Foetal exposure during pregnancy
     Dosage: UNK UNK, UNKNOWN FREQ.
     Route: 064
  12. DAUNORUBICIN [Suspect]
     Active Substance: DAUNORUBICIN
     Indication: Acute myeloid leukaemia
     Route: 064
  13. DAUNORUBICIN [Suspect]
     Active Substance: DAUNORUBICIN
     Indication: Foetal exposure during pregnancy
  14. DINOPROSTONE [Suspect]
     Active Substance: DINOPROSTONE
     Indication: Induction of cervix ripening
     Dosage: UNK UNK, UNKNOWN FREQ.
     Route: 064
  15. DINOPROSTONE [Suspect]
     Active Substance: DINOPROSTONE
     Indication: Foetal exposure during pregnancy
     Dosage: 2 DOSES, OTHER (OVER 48 HOURS) (GEL)
     Route: 064
  16. DINOPROSTONE [Suspect]
     Active Substance: DINOPROSTONE
     Indication: Foetal exposure during pregnancy
     Dosage: UNK UNK, UNKNOWN FREQ.
     Route: 064
  17. FERROUS SULFATE ANHYDROUS [Suspect]
     Active Substance: FERROUS SULFATE ANHYDROUS
     Indication: Supplementation therapy
     Dosage: UNK UNK, UNKNOWN FREQ.
     Route: 064
  18. FERROUS SULFATE ANHYDROUS [Suspect]
     Active Substance: FERROUS SULFATE ANHYDROUS
     Indication: Foetal exposure during pregnancy
  19. MAGNESIUM [Suspect]
     Active Substance: MAGNESIUM
     Indication: Nervous system disorder prophylaxis
     Dosage: UNK UNK, UNKNOWN FREQ.
     Route: 064
  20. MAGNESIUM [Suspect]
     Active Substance: MAGNESIUM
     Indication: Foetal exposure during pregnancy
  21. MEROPENEM [Suspect]
     Active Substance: MEROPENEM
     Indication: Pericoronitis
     Dosage: UNK UNK, UNKNOWN FREQ
     Route: 064
  22. MEROPENEM [Suspect]
     Active Substance: MEROPENEM
     Indication: Febrile neutropenia
  23. MEROPENEM [Suspect]
     Active Substance: MEROPENEM
     Indication: Foetal exposure during pregnancy
  24. METRONIDAZOLE [Suspect]
     Active Substance: METRONIDAZOLE
     Indication: Pericoronitis
     Dosage: UNK UNK, UNKNOWN FREQ.
     Route: 064
  25. METRONIDAZOLE [Suspect]
     Active Substance: METRONIDAZOLE
     Indication: Febrile neutropenia
  26. METRONIDAZOLE [Suspect]
     Active Substance: METRONIDAZOLE
     Indication: Foetal exposure during pregnancy
  27. OXYTOCIN [Suspect]
     Active Substance: OXYTOCIN
     Indication: Labour induction
     Dosage: UNK UNK, UNKNOWN FREQ.
     Route: 064
  28. OXYTOCIN [Suspect]
     Active Substance: OXYTOCIN
     Indication: Foetal exposure during pregnancy

REACTIONS (7)
  - Foetal anaemia [Recovered/Resolved]
  - Premature baby [Recovered/Resolved]
  - Haemoglobin decreased [Recovered/Resolved]
  - Periventricular leukomalacia [Recovered/Resolved]
  - White matter lesion [Recovered/Resolved]
  - Low birth weight baby [Recovered/Resolved]
  - Foetal exposure during pregnancy [Recovered/Resolved]
